FAERS Safety Report 14821577 (Version 1)
Quarter: 2018Q2

REPORT INFORMATION
  Report Type: Spontaneous
  Country: FR (occurrence: FR)
  Receive Date: 20180427
  Receipt Date: 20180427
  Transmission Date: 20180711
  Serious: Yes (Hospitalization, Other)
  Sender: FDA-Public Use
  Company Number: FR-EMD SERONO-9023183

PATIENT
  Sex: Female

DRUGS (1)
  1. REBIF [Suspect]
     Active Substance: INTERFERON BETA-1A
     Indication: MULTIPLE SCLEROSIS
     Dosage: REBIF THERAPY WAS STARTED SINCE AN UNKNOWN DATE IN 2002 OR 2004.
     Route: 058

REACTIONS (5)
  - Thrombotic microangiopathy [Unknown]
  - Thrombocytopenia [Unknown]
  - Pulmonary hypertension [Unknown]
  - Genital disorder female [Unknown]
  - Renal failure [Unknown]
